FAERS Safety Report 10963158 (Version 1)
Quarter: 2015Q1

REPORT INFORMATION
  Report Type: Spontaneous
  Country: US (occurrence: US)
  Receive Date: 20150205
  Receipt Date: 20150205
  Transmission Date: 20150721
  Serious: Yes (Death, Hospitalization)
  Sender: FDA-Public Use
  Company Number: US-APOTEX-2015AP006139

PATIENT
  Age: 78 Year
  Sex: Female

DRUGS (11)
  1. CIPROFLOXACIN HYDROCHLORIDE. [Suspect]
     Active Substance: CIPROFLOXACIN HYDROCHLORIDE
  2. DOCUSATE [Suspect]
     Active Substance: DOCUSATE
  3. ONDANSETRON HYDROCHLORIDE. [Suspect]
     Active Substance: ONDANSETRON HYDROCHLORIDE
  4. METOPROLOL [Suspect]
     Active Substance: METOPROLOL
  5. TRAMADOL HYDROCHLORIDE. [Suspect]
     Active Substance: TRAMADOL HYDROCHLORIDE
  6. PRIMIDONE. [Suspect]
     Active Substance: PRIMIDONE
  7. FUROSEMIDE. [Suspect]
     Active Substance: FUROSEMIDE
  8. AMOXICILLIN. [Suspect]
     Active Substance: AMOXICILLIN
  9. WARFARIN [Suspect]
     Active Substance: WARFARIN
  10. CELECOXIB. [Suspect]
     Active Substance: CELECOXIB
  11. ESOMEPRAZOLE [Suspect]
     Active Substance: ESOMEPRAZOLE

REACTIONS (1)
  - Completed suicide [Fatal]
